FAERS Safety Report 6843993-5 (Version None)
Quarter: 2010Q3

REPORT INFORMATION
  Report Type: 
  Country: None (occurrence: None)
  Receive Date: 20100714
  Receipt Date: 20100714
  Transmission Date: 20110219
  Serious: Yes (Other)
  Sender: FDA-Public Use
  Company Number: None

PATIENT
  Age: 70 Year
  Sex: Male
  Weight: 72.1219 kg

DRUGS (2)
  1. FLOMAX [Suspect]
     Indication: PROSTATOMEGALY
     Dosage: 0.4 MG ONCE PO
     Route: 048
     Dates: start: 20100712, end: 20100712
  2. FLOMAX [Suspect]
     Indication: URINE FLOW DECREASED
     Dosage: 0.4 MG ONCE PO
     Route: 048
     Dates: start: 20100712, end: 20100712

REACTIONS (5)
  - ABDOMINAL DISTENSION [None]
  - ABDOMINAL RIGIDITY [None]
  - HEADACHE [None]
  - PRESYNCOPE [None]
  - SINUS CONGESTION [None]
